FAERS Safety Report 7822997-X (Version None)
Quarter: 2011Q4

REPORT INFORMATION
  Report Type: 
  Country: None (occurrence: None)
  Receive Date: 20111018
  Receipt Date: 20110311
  Transmission Date: 20120403
  Serious: No
  Sender: FDA-Public Use
  Company Number: US-ASTRAZENECA-2011SE14180

PATIENT
  Age: 63 Year
  Sex: Female

DRUGS (11)
  1. SYMBICORT [Suspect]
     Dosage: 160/4.5 MCG 2 INHALATIONS BY MOUTH TWICE A DAY
     Route: 055
     Dates: start: 20091102
  2. XANAX [Concomitant]
  3. TRAMADOL HCL [Concomitant]
  4. HYDROCHLOROTHIAZIDE [Concomitant]
  5. VESICARE [Concomitant]
  6. SYNTHROID [Concomitant]
  7. ALBUTEROL SULFATE [Concomitant]
  8. WELLBUTRIN SR [Concomitant]
  9. FLUOXETINE HYDROCHLORIDE [Concomitant]
  10. PRAVASTATIN SODIUM [Concomitant]
  11. OMEPRAZOLE [Suspect]
     Route: 048
     Dates: start: 20100308

REACTIONS (5)
  - EAR INFECTION [None]
  - EAR HAEMORRHAGE [None]
  - UPPER RESPIRATORY TRACT INFECTION [None]
  - URINARY TRACT INFECTION [None]
  - SINUSITIS [None]
